FAERS Safety Report 6573483-9 (Version None)
Quarter: 2010Q1

REPORT INFORMATION
  Report Type: 
  Country: None (occurrence: None)
  Receive Date: 20100208
  Receipt Date: 20100203
  Transmission Date: 20100710
  Serious: Yes (Other)
  Sender: FDA-Public Use
  Company Number: JP-SANOFI-AVENTIS-2010SA006455

PATIENT
  Age: 79 Year
  Sex: Female
  Weight: 42.5 kg

DRUGS (7)
  1. LASIX [Suspect]
  2. PARIET [Suspect]
  3. ALLOPURINOL [Suspect]
  4. CALCIUM CARBONATE [Concomitant]
  5. NEUQUINON [Concomitant]
  6. ASPIRIN [Concomitant]
  7. CALCIUM POLYSTYRENE SULFONATE [Concomitant]

REACTIONS (2)
  - EOSINOPHILIA [None]
  - PERITONITIS [None]
